FAERS Safety Report 9168561 (Version 1)
Quarter: 2013Q1

REPORT INFORMATION
  Report Type: Spontaneous
  Country: US (occurrence: None)
  Receive Date: 20130314
  Receipt Date: 20130314
  Transmission Date: 20140127
  Serious: Yes (Other)
  Sender: FDA-Public Use
  Company Number: None

PATIENT
  Age: 76 Year
  Sex: Female
  Weight: 49.9 kg

DRUGS (3)
  1. LEVAQUIN 500MG UNKNOWN [Suspect]
     Indication: INFECTION
     Route: 048
  2. MORPHINE ER (MS CONTIN) [Concomitant]
  3. PERCOCET [Concomitant]

REACTIONS (1)
  - Muscular weakness [None]
